FAERS Safety Report 6165554-6 (Version None)
Quarter: 2009Q2

REPORT INFORMATION
  Report Type: 
  Country: None (occurrence: None)
  Receive Date: 20090423
  Receipt Date: 20090410
  Transmission Date: 20091009
  Serious: Yes (Hospitalization, Other)
  Sender: FDA-Public Use
  Company Number: PHHY2009US03645

PATIENT
  Sex: Female

DRUGS (12)
  1. GLEEVEC [Suspect]
     Indication: CHRONIC MYELOID LEUKAEMIA
     Dosage: 400 MG, QD
     Route: 048
     Dates: start: 20080815, end: 20081103
  2. IMDUR [Concomitant]
     Dosage: 40 MG, QD
     Route: 048
  3. LASIX [Concomitant]
     Dosage: 20 MG, QW2
     Route: 048
  4. PRILOSEC [Concomitant]
     Dosage: 20 MG, QD
     Route: 048
  5. LIPITOR [Concomitant]
     Dosage: 40 MG, QD
     Route: 048
  6. PLAVIX [Concomitant]
     Dosage: 75 MG, QD
     Route: 048
  7. TEMAZEPAM [Concomitant]
     Dosage: 15 MG, QHS
     Route: 048
  8. PREDNISONE [Concomitant]
     Dosage: 50 MG, QD
  9. METOPROLOL TARTRATE [Concomitant]
     Indication: HYPERTENSION
     Dosage: 100 MG, QD
  10. LISINOPRIL [Concomitant]
     Indication: HYPERTENSION
     Dosage: 80 MG, QD
  11. EVISTA [Concomitant]
     Indication: OSTEOPOROSIS
     Dosage: 40 MG, QD
     Route: 048
  12. ASPIRIN [Concomitant]
     Dosage: 81 MG, QD
     Route: 048

REACTIONS (27)
  - ABSCESS BACTERIAL [None]
  - ATRIAL FIBRILLATION [None]
  - CONTUSION [None]
  - DEHYDRATION [None]
  - DIARRHOEA [None]
  - DIVERTICULAR PERFORATION [None]
  - DIVERTICULITIS [None]
  - DIVERTICULUM [None]
  - ENTEROSTOMY [None]
  - ESCHERICHIA INFECTION [None]
  - ESCHERICHIA URINARY TRACT INFECTION [None]
  - EXCESSIVE GRANULATION TISSUE [None]
  - FACE OEDEMA [None]
  - GASTROINTESTINAL HAEMORRHAGE [None]
  - HYPOXIA [None]
  - ILEUS [None]
  - LABILE BLOOD PRESSURE [None]
  - LOCALISED OEDEMA [None]
  - MALNUTRITION [None]
  - PEPTOSTREPTOCOCCUS INFECTION [None]
  - PLEURAL EFFUSION [None]
  - PYELONEPHRITIS [None]
  - RASH GENERALISED [None]
  - SEPSIS [None]
  - TACHYCARDIA [None]
  - VOMITING [None]
  - WOUND TREATMENT [None]
